FAERS Safety Report 17000762 (Version 1)
Quarter: 2019Q4

REPORT INFORMATION
  Report Type: Spontaneous
  Country: US (occurrence: US)
  Receive Date: 20191106
  Receipt Date: 20191106
  Transmission Date: 20200122
  Serious: No
  Sender: FDA-Public Use
  Company Number: US-TEVA-2019-US-1133079

PATIENT
  Sex: Female

DRUGS (1)
  1. CLONAZEPAM TABLET TEVA [Suspect]
     Active Substance: CLONAZEPAM
     Indication: ANXIETY
     Dosage: SINCE 3.5 YEARS
     Route: 065

REACTIONS (1)
  - Drug ineffective [Unknown]
